FAERS Safety Report 6263217-X (Version None)
Quarter: 2009Q3

REPORT INFORMATION
  Report Type: 
  Country: None (occurrence: None)
  Receive Date: 20090710
  Receipt Date: 20090707
  Transmission Date: 20100115
  Serious: Yes (Death)
  Sender: FDA-Public Use
  Company Number: US-BRISTOL-MYERS SQUIBB COMPANY-14608442

PATIENT
  Age: 70 Year
  Sex: Male
  Weight: 82 kg

DRUGS (4)
  1. ERBITUX [Suspect]
     Indication: NON-SMALL CELL LUNG CANCER
     Dosage: START DATE OF FIRST COURSE 09MAR09
     Dates: start: 20090427, end: 20090427
  2. TAXOL [Suspect]
     Indication: NON-SMALL CELL LUNG CANCER
     Dosage: START DATE OF FIRST COURSE 09MAR09
     Dates: start: 20090427, end: 20090427
  3. CARBOPLATIN [Suspect]
     Indication: NON-SMALL CELL LUNG CANCER
     Dosage: START DATE OF FIRST COURSE 09MAR09
     Dates: start: 20090427, end: 20090427
  4. RADIATION THERAPY [Suspect]
     Indication: NON-SMALL CELL LUNG CANCER
     Dosage: FIRST COURSE 09MAR09 HIGH DOSE RADIATION (74GY)X37 FRACTIONS(71/2 WEEKS) 1 DF = 6200 CGY
     Dates: start: 20090427, end: 20090427

REACTIONS (1)
  - PULMONARY EMBOLISM [None]
